FAERS Safety Report 4345030-3 (Version None)
Quarter: 2004Q2

REPORT INFORMATION
  Report Type: 
  Country: None (occurrence: None)
  Receive Date: 20040420
  Receipt Date: 20040407
  Transmission Date: 20050107
  Serious: No
  Sender: FDA-Public Use
  Company Number: 2004AP02129

PATIENT
  Sex: Male

DRUGS (1)
  1. PULMICORT [Suspect]

REACTIONS (2)
  - BONE DENSITY DECREASED [None]
  - RIB FRACTURE [None]
